FAERS Safety Report 5823634-6 (Version None)
Quarter: 2008Q3

REPORT INFORMATION
  Report Type: 
  Country: None (occurrence: None)
  Receive Date: 20080725
  Receipt Date: 20080715
  Transmission Date: 20090109
  Serious: Yes (Other)
  Sender: FDA-Public Use
  Company Number: US-PFIZER INC-2006116966

PATIENT
  Sex: Female
  Weight: 83.9 kg

DRUGS (11)
  1. LYRICA [Interacting]
     Indication: NEURALGIA
  2. NEURONTIN [Suspect]
  3. OXYCONTIN [Interacting]
  4. RITALIN [Concomitant]
  5. ZOLOFT [Concomitant]
  6. NAPROXEN [Concomitant]
  7. RANITIDINE HCL [Concomitant]
  8. ZETIA [Concomitant]
  9. ADVAIR DISKUS 100/50 [Concomitant]
  10. VICODIN [Concomitant]
  11. GABAPENTIN [Concomitant]

REACTIONS (10)
  - CRYING [None]
  - DEPRESSED MOOD [None]
  - DRUG INTERACTION [None]
  - FORMICATION [None]
  - HOT FLUSH [None]
  - HYPERHIDROSIS [None]
  - NAUSEA [None]
  - PAIN [None]
  - VISION BLURRED [None]
  - WITHDRAWAL SYNDROME [None]
